FAERS Safety Report 9227563 (Version 1)
Quarter: 2013Q2

REPORT INFORMATION
  Report Type: Spontaneous
  Country: US (occurrence: None)
  Receive Date: 20130411
  Receipt Date: 20130411
  Transmission Date: 20140414
  Serious: Yes (Hospitalization)
  Sender: FDA-Public Use
  Company Number: None

PATIENT
  Sex: Female
  Weight: 81.2 kg

DRUGS (10)
  1. ECOTRIN [Suspect]
     Indication: OSTEOARTHRITIS
     Dosage: CHRONIC
     Route: 048
  2. ARTHRITIS [Suspect]
     Indication: OSTEOARTHRITIS
     Route: 048
  3. CENTRUM SILVER [Concomitant]
  4. VIT D3 [Concomitant]
  5. METOPROLOL TARTRATE [Concomitant]
  6. LOSARTAN [Concomitant]
  7. MACILAR VITAMIN BENEFIT [Concomitant]
  8. PREVACID [Concomitant]
  9. VICODIN [Concomitant]
  10. MAXZIDE [Concomitant]

REACTIONS (4)
  - Sinus arrest [None]
  - Gastrointestinal stromal tumour [None]
  - Tumour haemorrhage [None]
  - Treatment noncompliance [None]
